FAERS Safety Report 9459805 (Version 1)
Quarter: 2013Q3

REPORT INFORMATION
  Report Type: Spontaneous
  Country: JP (occurrence: JP)
  Receive Date: 20130815
  Receipt Date: 20130815
  Transmission Date: 20140515
  Serious: No
  Sender: FDA-Public Use
  Company Number: JP-EISAI INC-E3810-06598-SPO-JP

PATIENT
  Age: 76 Year
  Sex: Female

DRUGS (2)
  1. PARIET (RABEPRAZOLE) [Suspect]
     Dosage: UNKNOWN
     Route: 048
  2. SELBEX [Concomitant]
     Route: 048

REACTIONS (2)
  - Dyspnoea [Unknown]
  - Nausea [Unknown]
